FAERS Safety Report 7725434-9 (Version None)
Quarter: 2011Q3

REPORT INFORMATION
  Report Type: 
  Country: None (occurrence: None)
  Receive Date: 20110902
  Receipt Date: 20110823
  Transmission Date: 20111222
  Serious: Yes (Other)
  Sender: FDA-Public Use
  Company Number: US-JNJFOC-20110800518

PATIENT
  Sex: Male
  Weight: 92.99 kg

DRUGS (4)
  1. SIMVASTATIN [Concomitant]
  2. STELARA [Suspect]
     Indication: PSORIASIS
     Route: 058
     Dates: start: 20091118, end: 20091218
  3. PROPRANOLOL [Concomitant]
  4. AMLODIPINE [Concomitant]

REACTIONS (1)
  - PROSTATE CANCER [None]
